FAERS Safety Report 25127973 (Version 4)
Quarter: 2025Q2

REPORT INFORMATION
  Report Type: Spontaneous
  Country: JP (occurrence: JP)
  Receive Date: 20250327
  Receipt Date: 20250526
  Transmission Date: 20250716
  Serious: Yes (Other)
  Sender: GILEAD
  Company Number: JP-GILEAD-2025-0708482

PATIENT
  Age: 56 Year
  Sex: Female

DRUGS (2)
  1. TRODELVY [Suspect]
     Active Substance: SACITUZUMAB GOVITECAN-HZIY
     Indication: Triple negative breast cancer
     Route: 065
     Dates: start: 20241219, end: 20241219
  2. TRODELVY [Suspect]
     Active Substance: SACITUZUMAB GOVITECAN-HZIY
     Route: 065
     Dates: start: 20250110, end: 20250221

REACTIONS (2)
  - Pneumatosis intestinalis [Recovered/Resolved]
  - White blood cell count decreased [Recovered/Resolved]

NARRATIVE: CASE EVENT DATE: 20241227
